FAERS Safety Report 9455362 (Version 2)
Quarter: 2013Q4

REPORT INFORMATION
  Report Type: Spontaneous
  Country: JP (occurrence: JP)
  Receive Date: 20130813
  Receipt Date: 20131025
  Transmission Date: 20140711
  Serious: Yes (Hospitalization)
  Sender: FDA-Public Use
  Company Number: PHHY2013JP085888

PATIENT
  Sex: 0

DRUGS (3)
  1. NEORAL [Suspect]
     Indication: INTERSTITIAL LUNG DISEASE
     Route: 048
     Dates: start: 2013, end: 2013
  2. NEORAL [Suspect]
     Indication: OFF LABEL USE
  3. CORTICOSTEROIDS [Suspect]

REACTIONS (4)
  - Alveolar proteinosis [Recovered/Resolved]
  - Respiratory disorder [Recovering/Resolving]
  - Condition aggravated [Unknown]
  - Drug ineffective [Unknown]
